FAERS Safety Report 4784835-1 (Version None)
Quarter: 2005Q3

REPORT INFORMATION
  Report Type: 
  Country: None (occurrence: None)
  Receive Date: 20050929
  Receipt Date: 20050929
  Transmission Date: 20060218
  Serious: Yes (Other)
  Sender: FDA-Public Use
  Company Number: None

PATIENT
  Age: 54 Year
  Sex: Female
  Weight: 106 kg

DRUGS (1)
  1. ZOSYN [Suspect]
     Dosage: IV 9 GM PER 24 HOURS
     Route: 042
     Dates: start: 20050918

REACTIONS (1)
  - HYPERPYREXIA [None]
